FAERS Safety Report 9347196 (Version 1)
Quarter: 2013Q2

REPORT INFORMATION
  Report Type: Spontaneous
  Country: DE (occurrence: DE)
  Receive Date: 20130613
  Receipt Date: 20130613
  Transmission Date: 20140414
  Serious: Yes (Hospitalization)
  Sender: FDA-Public Use
  Company Number: DE-ELI_LILLY_AND_COMPANY-DE201306001145

PATIENT
  Sex: Female

DRUGS (5)
  1. FORSTEO [Suspect]
     Indication: OSTEOPOROSIS
     Dosage: UNK, QD
     Route: 058
     Dates: start: 20111213
  2. TARGIN [Concomitant]
     Dosage: UNK, UNKNOWN
     Route: 065
  3. NOVALGIN                           /00169801/ [Concomitant]
     Dosage: UNK, UNKNOWN
     Route: 065
  4. BISOHEXAL [Concomitant]
     Dosage: UNK, UNKNOWN
     Route: 065
  5. L-THYROXIN [Concomitant]
     Dosage: 125 MG, QD
     Route: 065

REACTIONS (2)
  - Cystitis [Recovered/Resolved]
  - Pneumonia [Recovered/Resolved]
